FAERS Safety Report 23176710 (Version 1)
Quarter: 2023Q4

REPORT INFORMATION
  Report Type: Spontaneous
  Country: US (occurrence: None)
  Receive Date: 20231110
  Receipt Date: 20231110
  Transmission Date: 20240109
  Serious: No
  Sender: FDA-Public Use
  Company Number: None

PATIENT
  Age: 63 Year
  Sex: Female
  Weight: 76.6 kg

DRUGS (1)
  1. TECLISTAMAB [Suspect]
     Active Substance: TECLISTAMAB
     Indication: Plasma cell myeloma
     Dosage: OTHER FREQUENCY : DAY 1, 3, 5;?
     Route: 058
     Dates: start: 2023

REACTIONS (3)
  - Pyrexia [None]
  - Hypotension [None]
  - Mental disorder [None]

NARRATIVE: CASE EVENT DATE: 20231023
